FAERS Safety Report 5678431-1 (Version None)
Quarter: 2008Q1

REPORT INFORMATION
  Report Type: 
  Country: None (occurrence: None)
  Receive Date: 20080320
  Receipt Date: 20080313
  Transmission Date: 20080703
  Serious: Yes (Hospitalization)
  Sender: FDA-Public Use
  Company Number: 2008-01833

PATIENT
  Age: 36 Year
  Sex: Male

DRUGS (2)
  1. ACYCLOVIR [Suspect]
     Indication: HERPES VIRUS INFECTION
     Dosage: 500 MG, DAILY, INTRAVENOUS
     Route: 042
     Dates: start: 20070101, end: 20070101
  2. VALACYCLOVIR [Suspect]
     Indication: MUCOSAL INFLAMMATION
     Dosage: 500 MG, BID, ORAL
     Route: 048
     Dates: start: 20070101, end: 20070101

REACTIONS (1)
  - COTARD'S SYNDROME [None]
